FAERS Safety Report 18116946 (Version 1)
Quarter: 2020Q3

REPORT INFORMATION
  Report Type: Spontaneous
  Country: US (occurrence: US)
  Receive Date: 20200805
  Receipt Date: 20200805
  Transmission Date: 20201103
  Serious: Yes (Other)
  Sender: FDA-Public Use
  Company Number: US-009507513-2008USA000406

PATIENT
  Sex: Male

DRUGS (2)
  1. PROPECIA [Suspect]
     Active Substance: FINASTERIDE
     Dosage: 1 MILLIGRAM
     Route: 048
     Dates: start: 201908, end: 202006
  2. PROPECIA [Suspect]
     Active Substance: FINASTERIDE
     Indication: HAIR GROWTH ABNORMAL
     Dosage: 1 MILLIGRAM
     Route: 048
     Dates: start: 2005

REACTIONS (7)
  - Erectile dysfunction [Unknown]
  - Alopecia [Unknown]
  - Discomfort [Unknown]
  - Disturbance in sexual arousal [Unknown]
  - Pain [Unknown]
  - Testicular pain [Recovering/Resolving]
  - Orgasm abnormal [Recovering/Resolving]

NARRATIVE: CASE EVENT DATE: 2005
